FAERS Safety Report 5061911-X (Version None)
Quarter: 2006Q3

REPORT INFORMATION
  Report Type: 
  Country: None (occurrence: None)
  Receive Date: 20060726
  Receipt Date: 20060323
  Transmission Date: 20061208
  Serious: Yes (Other)
  Sender: FDA-Public Use
  Company Number: US-GILEAD-2006-0009360

PATIENT
  Sex: Male

DRUGS (2)
  1. VIREAD [Suspect]
     Indication: HIV INFECTION
     Dates: start: 20051014
  2. KALETRA [Concomitant]
     Indication: HIV INFECTION

REACTIONS (3)
  - NAUSEA [None]
  - RENAL CYST [None]
  - RENAL FAILURE [None]
